FAERS Safety Report 16387340 (Version 3)
Quarter: 2019Q4

REPORT INFORMATION
  Report Type: Report from Study
  Country: CO (occurrence: CO)
  Receive Date: 20190604
  Receipt Date: 20191112
  Transmission Date: 20200122
  Serious: Yes (Hospitalization)
  Sender: FDA-Public Use
  Company Number: CO-ACTELION-A-CH2019-191130

PATIENT
  Age: 40 Year
  Sex: Female
  Weight: 160 kg

DRUGS (3)
  1. ILOPROST. [Concomitant]
     Active Substance: ILOPROST
     Dosage: EVERY 4HOURS
     Route: 055
     Dates: start: 201812, end: 20190916
  2. RIOCIGUAT. [Concomitant]
     Active Substance: RIOCIGUAT
     Dosage: 2.5 MG, TID
     Route: 048
     Dates: start: 201812, end: 20190916
  3. OPSUMIT [Suspect]
     Active Substance: MACITENTAN
     Indication: PULMONARY ARTERIAL HYPERTENSION
     Dosage: 10 MG, QD
     Route: 048
     Dates: start: 20190429, end: 20190916

REACTIONS (8)
  - Pleural effusion [Not Recovered/Not Resolved]
  - Pulmonary mass [Not Recovered/Not Resolved]
  - Dyspnoea [Unknown]
  - Immune system disorder [Not Recovered/Not Resolved]
  - Discomfort [Unknown]
  - Bronchitis chronic [Not Recovered/Not Resolved]
  - Influenza [Not Recovered/Not Resolved]
  - Pneumonia [Unknown]

NARRATIVE: CASE EVENT DATE: 20190508
